FAERS Safety Report 26097841 (Version 1)
Quarter: 2025Q4

REPORT INFORMATION
  Report Type: Spontaneous
  Country: EU (occurrence: EU)
  Receive Date: 20251127
  Receipt Date: 20251127
  Transmission Date: 20260117
  Serious: Yes (Hospitalization)
  Sender: MERCK SHARP & DOHME LLC
  Company Number: None

PATIENT
  Age: 55 Year
  Sex: Male
  Weight: 90 kg

DRUGS (14)
  1. BRIDION [Suspect]
     Active Substance: SUGAMMADEX SODIUM
     Indication: Neuromuscular blockade reversal
     Dosage: TIME INTERVAL: TOTAL
     Route: 042
     Dates: start: 20191128, end: 20191128
  2. KETOPROFEN [Suspect]
     Active Substance: KETOPROFEN
     Indication: Analgesic therapy
     Dosage: TIME INTERVAL: TOTAL
     Route: 042
     Dates: start: 20191128, end: 20191128
  3. DROPERIDOL [Suspect]
     Active Substance: DROPERIDOL
     Indication: Antiemetic supportive care
     Dosage: TIME INTERVAL: TOTAL
     Route: 042
     Dates: start: 20191128, end: 20191128
  4. KETAMINE HYDROCHLORIDE [Suspect]
     Active Substance: KETAMINE HYDROCHLORIDE
     Indication: Induction of anaesthesia
     Dosage: TIME INTERVAL: TOTAL
     Route: 042
     Dates: start: 20191128, end: 20191128
  5. DEXAMETHASONE [Suspect]
     Active Substance: DEXAMETHASONE
     Indication: Antiemetic supportive care
     Dosage: TIME INTERVAL: TOTAL
     Route: 042
     Dates: start: 20191128, end: 20191128
  6. SUFENTANIL [Suspect]
     Active Substance: SUFENTANIL
     Indication: Induction of anaesthesia
     Dosage: TIME INTERVAL: TOTAL
     Route: 042
     Dates: start: 20191128, end: 20191128
  7. PROPOFOL LIPURO [Suspect]
     Active Substance: PROPOFOL
     Indication: Induction of anaesthesia
     Dosage: TIME INTERVAL: TOTAL
     Route: 042
     Dates: start: 20191128, end: 20191128
  8. LIDOCAINE [Suspect]
     Active Substance: LIDOCAINE
     Indication: Induction of anaesthesia
     Dosage: TIME INTERVAL: TOTAL
     Route: 042
     Dates: start: 20191128, end: 20191128
  9. NEFOPAM [Suspect]
     Active Substance: NEFOPAM
     Indication: Analgesic therapy
     Dosage: TIME INTERVAL: TOTAL
     Route: 042
     Dates: start: 20191128, end: 20191128
  10. ROPIVACAINE [Suspect]
     Active Substance: ROPIVACAINE
     Indication: Induction of anaesthesia
     Route: 051
     Dates: start: 20191128, end: 20191128
  11. CEFAZOLIN SODIUM [Suspect]
     Active Substance: CEFAZOLIN SODIUM
     Indication: Infection prophylaxis
     Dosage: TIME INTERVAL: TOTAL
     Route: 042
     Dates: start: 20191128, end: 20191128
  12. ACETAMINOPHEN [Suspect]
     Active Substance: ACETAMINOPHEN
     Indication: Analgesic therapy
     Dosage: TIME INTERVAL: TOTAL
     Route: 042
     Dates: start: 20191128, end: 20191128
  13. POVIDONE-IODINE [Suspect]
     Active Substance: POVIDONE-IODINE
     Indication: Infection prophylaxis
     Route: 061
     Dates: start: 20191128, end: 20191128
  14. ROCURONIUM BROMIDE [Suspect]
     Active Substance: ROCURONIUM BROMIDE
     Indication: Induction of anaesthesia
     Dosage: TIME INTERVAL: TOTAL
     Route: 042
     Dates: start: 20191128, end: 20191128

REACTIONS (2)
  - Eyelid oedema [Recovered/Resolved]
  - Rash maculo-papular [Recovered/Resolved]

NARRATIVE: CASE EVENT DATE: 20191128
